FAERS Safety Report 4385639-4 (Version None)
Quarter: 2004Q2

REPORT INFORMATION
  Report Type: 
  Country: None (occurrence: None)
  Receive Date: 20040623
  Receipt Date: 20040603
  Transmission Date: 20050107
  Serious: Yes (Death, Hospitalization)
  Sender: FDA-Public Use
  Company Number: CA_040607012

PATIENT
  Age: 60 Year
  Sex: Female

DRUGS (7)
  1. GEMCITABINE HYDROCHLORIDE-IV (GEMCITABINE) [Suspect]
     Indication: OVARIAN CANCER
     Dosage: 1770 MG/M2 DAY
     Dates: start: 20021114
  2. RAF KINASE INHIBITOR [Suspect]
     Indication: OVARIAN CANCER
     Dosage: 300 MG DAY
     Dates: start: 20021025
  3. BENADRYL [Concomitant]
  4. MUCOSITIS MOUTHWASH [Concomitant]
  5. NYSTATIN ORAL SUSPENSION BP (NYSTATIN) [Concomitant]
  6. DECADRON [Concomitant]
  7. PROCHLORPERAZINE [Concomitant]

REACTIONS (5)
  - ANAEMIA [None]
  - HYPOCALCAEMIA [None]
  - HYPOMAGNESAEMIA [None]
  - OEDEMA [None]
  - RASH [None]
